FAERS Safety Report 4995221-3 (Version None)
Quarter: 2006Q2

REPORT INFORMATION
  Report Type: 
  Country: None (occurrence: None)
  Receive Date: 20060508
  Receipt Date: 20060425
  Transmission Date: 20061013
  Serious: Yes (Death, Hospitalization, Other)
  Sender: FDA-Public Use
  Company Number: US-MERCK-0604USA04029

PATIENT
  Age: 63 Year
  Sex: Male
  Weight: 136 kg

DRUGS (12)
  1. VIOXX [Suspect]
     Indication: ARTHRITIS
     Route: 048
     Dates: start: 20010501, end: 20030201
  2. VIOXX [Suspect]
     Route: 048
     Dates: start: 20010501, end: 20030201
  3. VIOXX [Suspect]
     Route: 048
     Dates: start: 20010501, end: 20030201
  4. VIOXX [Suspect]
     Route: 048
     Dates: start: 20010501, end: 20030201
  5. VIOXX [Suspect]
     Indication: ARTHRALGIA
     Route: 048
     Dates: start: 20010501, end: 20030201
  6. VIOXX [Suspect]
     Route: 048
     Dates: start: 20010501, end: 20030201
  7. VIOXX [Suspect]
     Route: 048
     Dates: start: 20010501, end: 20030201
  8. VIOXX [Suspect]
     Route: 048
     Dates: start: 20010501, end: 20030201
  9. ELAVIL [Concomitant]
     Route: 048
  10. PROPOXYPHENE NAPSYLATE [Concomitant]
     Route: 065
  11. AMITRIPTYLINE HYDROCHLORIDE [Concomitant]
     Route: 065
  12. LABETALOL HYDROCHLORIDE [Concomitant]
     Route: 065

REACTIONS (7)
  - APNOEA [None]
  - ARRHYTHMIA [None]
  - CARDIAC ARREST [None]
  - CARDIAC DISORDER [None]
  - MYOCARDIAL INFARCTION [None]
  - PRESCRIBED OVERDOSE [None]
  - VENTRICULAR TACHYCARDIA [None]
